FAERS Safety Report 5366432-2 (Version None)
Quarter: 2007Q2

REPORT INFORMATION
  Report Type: 
  Country: None (occurrence: None)
  Receive Date: 20070622
  Receipt Date: 20070618
  Transmission Date: 20071010
  Serious: Yes (Other)
  Sender: FDA-Public Use
  Company Number: PHBS2007US10274

PATIENT
  Age: 5 Year
  Sex: Male

DRUGS (8)
  1. MYCOPHENOLATE MOFETIL [Suspect]
     Indication: LIVER TRANSPLANT
     Route: 065
  2. METHYLPREDNISOLONE 16MG TAB [Suspect]
     Indication: LIVER TRANSPLANT
     Dosage: 2 MG/KG/D
     Route: 065
  3. METHYLPREDNISOLONE 16MG TAB [Suspect]
     Dosage: UNK, UNK
  4. SULFAMETHOXAZOLE W/TRIMETHOPRIM [Suspect]
  5. GANCICLOVIR [Suspect]
  6. ATGAM [Concomitant]
     Dosage: 15 MG/KG/D
  7. CYCLOSPORINE [Suspect]
     Indication: LIVER TRANSPLANT
     Route: 065
  8. CYCLOSPORINE [Suspect]
     Dosage: 9-12 MG/KG/D
     Route: 065

REACTIONS (9)
  - BONE MARROW FAILURE [None]
  - COMPLICATIONS OF TRANSPLANTED LIVER [None]
  - HEPATIC ARTERY THROMBOSIS [None]
  - LIVER TRANSPLANT [None]
  - MENTAL STATUS CHANGES [None]
  - NEUROTOXICITY [None]
  - PANCYTOPENIA [None]
  - TRANSAMINASES INCREASED [None]
  - TRANSPLANT REJECTION [None]
